FAERS Safety Report 7364562-7 (Version None)
Quarter: 2011Q1

REPORT INFORMATION
  Report Type: 
  Country: None (occurrence: None)
  Receive Date: 20110321
  Receipt Date: 20101130
  Transmission Date: 20110831
  Serious: Yes (Death, Hospitalization)
  Sender: FDA-Public Use
  Company Number: JP-ASTRAZENECA-2011SE14354

PATIENT
  Age: 29378 Day
  Sex: Female

DRUGS (18)
  1. RHEUMATREX [Concomitant]
  2. NITOROL [Concomitant]
     Dates: start: 20100819, end: 20100820
  3. TPN ELECTROLYTES IN PLASTIC CONTAINER [Concomitant]
     Dates: start: 20100819
  4. PREDNISOLONE [Concomitant]
  5. BACTRIM [Concomitant]
  6. VERAPAMIL HCL [Concomitant]
  7. HEPARIN SODIUM [Concomitant]
     Dates: start: 20100819, end: 20100825
  8. SOLDEM 3A [Concomitant]
     Dates: start: 20100819
  9. SUNRYTHM [Concomitant]
  10. ZOSYN [Concomitant]
     Indication: PNEUMONIA
     Route: 042
     Dates: start: 20100813, end: 20100817
  11. KAYTWO N [Concomitant]
     Dates: start: 20100824, end: 20100824
  12. INTRALIPID 10% [Concomitant]
     Dates: start: 20100825
  13. LASIX [Concomitant]
     Dates: start: 20100819, end: 20100825
  14. MEROPENEM [Suspect]
     Indication: PNEUMONIA
     Route: 042
     Dates: start: 20100817, end: 20100830
  15. GASTER D [Concomitant]
     Dates: end: 20100823
  16. OMEPRAL [Concomitant]
     Dates: start: 20100824
  17. PROGRAF [Concomitant]
  18. WARFARIN SODIUM [Concomitant]

REACTIONS (3)
  - INTERNATIONAL NORMALISED RATIO INCREASED [None]
  - PNEUMONIA [None]
  - STRESS CARDIOMYOPATHY [None]
